FAERS Safety Report 21664741 (Version 2)
Quarter: 2022Q4

REPORT INFORMATION
  Report Type: Report from Study
  Country: FI (occurrence: FI)
  Receive Date: 20221130
  Receipt Date: 20221209
  Transmission Date: 20230113
  Serious: Yes (Hospitalization)
  Sender: FDA-Public Use
  Company Number: FI-MYLANLABS-2022M1133290

PATIENT
  Age: 29 Year
  Sex: Male

DRUGS (11)
  1. CLOZAPINE [Suspect]
     Active Substance: CLOZAPINE
     Indication: Schizophrenia
     Dosage: 150 MILLIGRAM, BID
     Route: 065
     Dates: start: 2022, end: 20221123
  2. CLOZAPINE [Suspect]
     Active Substance: CLOZAPINE
     Dosage: 300 MILLIGRAM
     Route: 065
     Dates: start: 2022, end: 2022
  3. CLOZAPINE [Suspect]
     Active Substance: CLOZAPINE
     Dosage: 400 MILLIGRAM (STOP DATE: 2022)
     Route: 065
     Dates: start: 20221005
  4. CLOZAPINE [Suspect]
     Active Substance: CLOZAPINE
     Dosage: 150 MILLIGRAM, BID
     Route: 065
     Dates: start: 20221105
  5. ZYPREXA [Suspect]
     Active Substance: OLANZAPINE
     Indication: Product used for unknown indication
     Dosage: 10 MILLIGRAM, TID
     Route: 065
     Dates: start: 20221113, end: 20221113
  6. DIAZEPAM [Concomitant]
     Active Substance: DIAZEPAM
     Dosage: 10 MILLIGRAM (5-10 MILLIGRAMS PER DAY AS REQUIRED)
     Route: 065
  7. IBUPROFEN [Concomitant]
     Active Substance: IBUPROFEN
     Dosage: UNK
     Route: 065
     Dates: start: 202210
  8. PANADOL [Concomitant]
     Active Substance: ACETAMINOPHEN
     Dosage: UNK
     Route: 065
     Dates: start: 202210
  9. Rinivent [Concomitant]
     Indication: Salivary hypersecretion
     Dosage: UNK
     Route: 065
  10. ZUCLOPENTHIXOL ACETATE [Concomitant]
     Active Substance: ZUCLOPENTHIXOL ACETATE
     Dosage: 75 MILLIGRAM, Q3D
     Route: 065
     Dates: start: 20220920, end: 20221005
  11. AMISULPRIDE [Concomitant]
     Active Substance: AMISULPRIDE
     Dosage: UNK
     Route: 065
     Dates: start: 20221130

REACTIONS (13)
  - Hospitalisation [Unknown]
  - Alanine aminotransferase increased [Recovering/Resolving]
  - Antipsychotic drug level increased [Unknown]
  - Fatigue [Unknown]
  - Gallbladder disorder [Unknown]
  - Gamma-glutamyltransferase increased [Unknown]
  - Prealbumin decreased [Unknown]
  - Hepatitis C antibody positive [Unknown]
  - Epstein-Barr virus antibody [Unknown]
  - Pain [Unknown]
  - Speech disorder [Recovering/Resolving]
  - Aspartate aminotransferase increased [Recovering/Resolving]
  - Off label use [Recovered/Resolved]

NARRATIVE: CASE EVENT DATE: 20221001
